FAERS Safety Report 14019155 (Version 6)
Quarter: 2018Q1

REPORT INFORMATION
  Report Type: Report from Study
  Country: US (occurrence: US)
  Receive Date: 20170928
  Receipt Date: 20180212
  Transmission Date: 20180508
  Serious: Yes (Hospitalization)
  Sender: FDA-Public Use
  Company Number: US-CELGENEUS-USA-20170904150

PATIENT
  Age: 71 Year
  Sex: Male
  Weight: 113 kg

DRUGS (34)
  1. GEMCITABINE [Suspect]
     Active Substance: GEMCITABINE\GEMCITABINE HYDROCHLORIDE
     Indication: PANCREATIC CARCINOMA
     Dosage: 1000 MILLIGRAM/SQ. METER
     Route: 065
     Dates: start: 20170831, end: 20170917
  2. ONDANSETRON [Concomitant]
     Active Substance: ONDANSETRON
     Indication: NAUSEA
     Dosage: 4 MG
     Route: 065
     Dates: start: 20170828, end: 20170901
  3. METOPROLOL. [Concomitant]
     Active Substance: METOPROLOL
     Indication: HYPERTENSION
     Dosage: 50 MILLIGRAM
     Route: 048
     Dates: start: 20170823
  4. TAMSULOSIN [Concomitant]
     Active Substance: TAMSULOSIN
     Indication: BENIGN PROSTATIC HYPERPLASIA
     Dosage: .4 MILLIGRAM
     Route: 048
  5. SULFAMETHOXAZOLE-TRIMETHOPRIM [Concomitant]
     Active Substance: SULFAMETHOXAZOLE\TRIMETHOPRIM
     Indication: INFECTION PROPHYLAXIS
     Dosage: 800-160MG
     Route: 048
     Dates: start: 20170915
  6. CLONIDINE. [Concomitant]
     Active Substance: CLONIDINE
     Indication: HYPERTENSION
     Dosage: .4 MILLIGRAM
     Route: 048
     Dates: start: 20170927, end: 20170927
  7. PANTOPRAZOLE [Concomitant]
     Active Substance: PANTOPRAZOLE
     Indication: GASTROOESOPHAGEAL REFLUX DISEASE
     Dosage: 40 MILLIGRAM
     Route: 048
     Dates: start: 20170914, end: 20170917
  8. INSULIN LISPRO [Concomitant]
     Active Substance: INSULIN LISPRO
     Indication: HYPERGLYCAEMIA
     Dosage: 1 IU (INTERNATIONAL UNIT)
     Route: 058
     Dates: start: 20170914, end: 20170917
  9. HEPARIN [Concomitant]
     Active Substance: HEPARIN SODIUM
     Indication: THROMBOSIS PROPHYLAXIS
     Dosage: 5000 IU (INTERNATIONAL UNIT)
     Route: 058
     Dates: start: 20170913, end: 20170916
  10. ABRAXANE [Suspect]
     Active Substance: PACLITAXEL
     Dosage: 125 MILLIGRAM/SQ. METER
     Route: 065
     Dates: start: 20170927, end: 20171010
  11. GEMCITABINE [Suspect]
     Active Substance: GEMCITABINE\GEMCITABINE HYDROCHLORIDE
     Dosage: 1000 MILLIGRAM/SQ. METER
     Route: 065
     Dates: end: 20170913
  12. TYLENOL [Concomitant]
     Active Substance: ACETAMINOPHEN
     Indication: PROPHYLAXIS
     Dosage: 650 MILLIGRAM
     Route: 048
     Dates: start: 20170907
  13. LOSARTAN. [Concomitant]
     Active Substance: LOSARTAN
     Dosage: 100 MILLIGRAM
     Route: 048
     Dates: start: 20170917
  14. SODIUM CHLORIDE. [Concomitant]
     Active Substance: SODIUM CHLORIDE
     Indication: PREMEDICATION
     Dosage: 600 MILLILITER
     Route: 041
     Dates: start: 20170831, end: 20170831
  15. SODIUM CHLORIDE. [Concomitant]
     Active Substance: SODIUM CHLORIDE
     Indication: CHRONIC KIDNEY DISEASE
     Dosage: 550 MILLILITER
     Route: 041
     Dates: start: 20170907, end: 20170907
  16. SODIUM CHLORIDE. [Concomitant]
     Active Substance: SODIUM CHLORIDE
     Dosage: 125 MILLILITER
     Route: 041
     Dates: start: 20170913, end: 20170916
  17. SODIUM CHLORIDE. [Concomitant]
     Active Substance: SODIUM CHLORIDE
     Dosage: 500 MILLILITER
     Route: 041
     Dates: start: 20170927, end: 20170927
  18. ABRAXANE [Suspect]
     Active Substance: PACLITAXEL
     Indication: PANCREATIC CARCINOMA
     Dosage: 125 MILLIGRAM/SQ. METER
     Route: 065
     Dates: start: 20170831, end: 20170917
  19. NIVOLUMAB [Suspect]
     Active Substance: NIVOLUMAB
     Indication: PANCREATIC CARCINOMA
     Dosage: 3 MILLIGRAM/KILOGRAM
     Route: 065
     Dates: start: 20170831, end: 20170917
  20. PROCHLORPERAZINE. [Concomitant]
     Active Substance: PROCHLORPERAZINE
     Indication: PROPHYLAXIS OF NAUSEA AND VOMITING
     Dosage: 10 MILLIGRAM
     Route: 048
     Dates: start: 20170828
  21. AMLODIPINE [Concomitant]
     Active Substance: AMLODIPINE BESYLATE
     Indication: HYPERTENSION
     Dosage: 5 MILLIGRAM
     Route: 048
     Dates: start: 20170927
  22. ABRAXANE [Suspect]
     Active Substance: PACLITAXEL
     Dosage: 125 MILLIGRAM/SQ. METER
     Route: 065
     Dates: end: 20170913
  23. TYLENOL [Concomitant]
     Active Substance: ACETAMINOPHEN
     Indication: PYREXIA
     Dosage: 1000 MG
     Route: 048
     Dates: start: 20170902, end: 20170902
  24. AIRBORNE [Concomitant]
     Active Substance: HERBALS\MINERALS\VITAMINS
     Indication: NASOPHARYNGITIS
     Route: 048
     Dates: start: 20170831
  25. ASPIRIN. [Concomitant]
     Active Substance: ASPIRIN
     Indication: HAEMORRHAGE
     Dosage: 81 MG
     Route: 048
  26. LOSARTAN. [Concomitant]
     Active Substance: LOSARTAN
     Indication: HYPERTENSION
     Dosage: 100 MILLIGRAM
     Route: 048
     Dates: start: 20170823, end: 20170913
  27. HUMALOG [Concomitant]
     Active Substance: INSULIN LISPRO
     Indication: HYPERGLYCAEMIA
     Route: 058
     Dates: start: 20170914, end: 20170917
  28. HYDRALAZINE [Concomitant]
     Active Substance: HYDRALAZINE HYDROCHLORIDE
     Indication: HYPERTENSION
     Dosage: 48 MILLIGRAM
     Route: 041
     Dates: start: 20170915, end: 20170916
  29. GEMCITABINE [Suspect]
     Active Substance: GEMCITABINE\GEMCITABINE HYDROCHLORIDE
     Dosage: 1000 MILLIGRAM/SQ. METER
     Route: 065
     Dates: start: 20170927, end: 20171010
  30. ONDANSETRON [Concomitant]
     Active Substance: ONDANSETRON
     Dosage: 4 MILLIGRAM
     Route: 048
     Dates: start: 20170831, end: 20170917
  31. OMEPRAZOLE. [Concomitant]
     Active Substance: OMEPRAZOLE
     Indication: GASTROOESOPHAGEAL REFLUX DISEASE
     Dosage: 20 MILLIGRAM
     Route: 048
  32. NIVOLUMAB [Suspect]
     Active Substance: NIVOLUMAB
     Dosage: 3 MILLIGRAM/KILOGRAM
     Route: 065
     Dates: end: 20170913
  33. NIVOLUMAB [Suspect]
     Active Substance: NIVOLUMAB
     Dosage: 3 MILLIGRAM/KILOGRAM
     Route: 065
     Dates: start: 20170927, end: 20171016
  34. BISMUTH SUBSALICYLATE. [Concomitant]
     Active Substance: BISMUTH SUBSALICYLATE
     Indication: PRODUCT USED FOR UNKNOWN INDICATION
     Route: 065

REACTIONS (4)
  - Aspartate aminotransferase increased [Recovered/Resolved with Sequelae]
  - Acute kidney injury [Recovered/Resolved]
  - Alanine aminotransferase increased [Recovered/Resolved with Sequelae]
  - Acute kidney injury [Recovered/Resolved]

NARRATIVE: CASE EVENT DATE: 20170913
